FAERS Safety Report 19446262 (Version 1)
Quarter: 2021Q2

REPORT INFORMATION
  Report Type: Spontaneous
  Country: US (occurrence: US)
  Receive Date: 20210622
  Receipt Date: 20210622
  Transmission Date: 20210717
  Serious: No
  Sender: FDA-Public Use
  Company Number: US-JNJFOC-20210642804

PATIENT
  Age: 38 Year
  Sex: Male

DRUGS (1)
  1. REMICADE [Suspect]
     Active Substance: INFLIXIMAB
     Indication: HIDRADENITIS
     Route: 042

REACTIONS (4)
  - Gait disturbance [Unknown]
  - Off label use [Unknown]
  - Product use in unapproved indication [Unknown]
  - Peripheral swelling [Unknown]

NARRATIVE: CASE EVENT DATE: 20210608
